FAERS Safety Report 22822845 (Version 4)
Quarter: 2025Q3

REPORT INFORMATION
  Report Type: Report from Study
  Country: CA (occurrence: CA)
  Receive Date: 20230815
  Receipt Date: 20250717
  Transmission Date: 20251020
  Serious: Yes (Disabling, Other)
  Sender: NOVARTIS
  Company Number: CA-002147023-PHHY2016CA165978

PATIENT
  Age: 50 Year
  Sex: Female

DRUGS (7)
  1. COSENTYX [Suspect]
     Active Substance: SECUKINUMAB
     Indication: Psoriasis
     Dosage: 300 MG, QW (LOADING DOSE)
     Route: 058
     Dates: start: 20161127, end: 20161218
  2. COSENTYX [Suspect]
     Active Substance: SECUKINUMAB
     Dosage: 300 MG, QMO (MAINTENANCE DOSE)
     Route: 058
     Dates: start: 20161225
  3. COSENTYX [Suspect]
     Active Substance: SECUKINUMAB
     Dosage: 300 MG, QMO
     Route: 058
     Dates: start: 20170125
  4. COSENTYX [Suspect]
     Active Substance: SECUKINUMAB
     Dosage: 300 MG, QMO
     Route: 058
     Dates: start: 2017
  5. COSENTYX [Suspect]
     Active Substance: SECUKINUMAB
     Dosage: 300 MG, QMO
     Route: 058
     Dates: start: 20181125
  6. COSENTYX [Suspect]
     Active Substance: SECUKINUMAB
     Dosage: 300 MG, QMO
     Route: 058
  7. METHOTREXATE [Concomitant]
     Active Substance: METHOTREXATE
     Indication: Product used for unknown indication
     Route: 065
     Dates: start: 201608

REACTIONS (10)
  - Gait disturbance [Unknown]
  - Psoriasis [Recovering/Resolving]
  - Pruritus [Recovered/Resolved]
  - Kidney infection [Unknown]
  - Asthenia [Unknown]
  - Urinary tract infection [Unknown]
  - Cystitis [Unknown]
  - Pain in extremity [Unknown]
  - Psoriasis area severity index increased [Unknown]
  - Inappropriate schedule of product administration [Unknown]

NARRATIVE: CASE EVENT DATE: 20161129
